FAERS Safety Report 4519771-9 (Version None)
Quarter: 2004Q4

REPORT INFORMATION
  Report Type: 
  Country: None (occurrence: None)
  Receive Date: 20041203
  Receipt Date: 20041203
  Transmission Date: 20050328
  Serious: Yes (Life-Threatening, Hospitalization, Disabling)
  Sender: FDA-Public Use
  Company Number: None

PATIENT
  Age: 52 Year
  Sex: Male
  Weight: 72.5755 kg

DRUGS (1)
  1. HUMIRA [Suspect]
     Indication: ARTHRITIS
     Dosage: 40MG   EVERY2WEEKS  SUBCUTANEOUS
     Route: 058
     Dates: start: 20030301, end: 20040401

REACTIONS (16)
  - ARTHRALGIA [None]
  - ARTHRITIS [None]
  - BACTERIAL INFECTION [None]
  - CONDITION AGGRAVATED [None]
  - CSF PROTEIN INCREASED [None]
  - CSF WHITE BLOOD CELL COUNT POSITIVE [None]
  - JOINT DESTRUCTION [None]
  - MALAISE [None]
  - MEDICAL DEVICE REMOVAL [None]
  - PAIN [None]
  - PAROTITIS [None]
  - PLEOCYTOSIS [None]
  - PLEURAL EFFUSION [None]
  - PURULENT DISCHARGE [None]
  - SALMONELLA SEPSIS [None]
  - SALMONELLOSIS [None]
